FAERS Safety Report 6536896-7 (Version None)
Quarter: 2010Q1

REPORT INFORMATION
  Report Type: 
  Country: None (occurrence: None)
  Receive Date: 20100106
  Receipt Date: 20091223
  Transmission Date: 20100710
  Serious: Yes (Disabling)
  Sender: FDA-Public Use
  Company Number: 1000010986

PATIENT
  Age: 40 Year
  Sex: Female
  Weight: 53.07 kg

DRUGS (1)
  1. ESCITALOPRAM OXALATE [Suspect]
     Indication: ANXIETY
     Dosage: (5 MG, ONCE), ORAL
     Route: 048
     Dates: start: 20091210, end: 20091210

REACTIONS (9)
  - DIARRHOEA [None]
  - FEELING ABNORMAL [None]
  - MALAISE [None]
  - NAUSEA [None]
  - PALPITATIONS [None]
  - SYNCOPE [None]
  - TREMOR [None]
  - VOMITING [None]
  - YAWNING [None]
